FAERS Safety Report 8080049-0 (Version None)
Quarter: 2012Q1

REPORT INFORMATION
  Report Type: 
  Country: None (occurrence: None)
  Receive Date: 20120128
  Receipt Date: 20110722
  Transmission Date: 20120608
  Serious: No
  Sender: FDA-Public Use
  Company Number: US-ABBOTT-11P-163-0841346-00

PATIENT
  Age: 49 Year
  Sex: Female

DRUGS (5)
  1. METHOTREXATE [Concomitant]
     Indication: PSORIATIC ARTHROPATHY
     Dosage: 5MG ONCE A WEEK
     Route: 050
  2. METHOTREXATE [Concomitant]
     Indication: PSORIASIS
  3. PREDNISONE TAB [Concomitant]
     Indication: PSORIATIC ARTHROPATHY
     Dosage: 1 TABLET = 10 MG
     Route: 048
  4. PREDNISONE TAB [Concomitant]
     Indication: PSORIASIS
  5. HUMIRA [Suspect]
     Indication: PSORIASIS
     Dates: start: 20110603

REACTIONS (3)
  - INCORRECT DOSE ADMINISTERED [None]
  - INJECTION SITE HAEMORRHAGE [None]
  - WRONG TECHNIQUE IN DRUG USAGE PROCESS [None]
